FAERS Safety Report 5598197-3 (Version None)
Quarter: 2008Q1

REPORT INFORMATION
  Report Type: 
  Country: None (occurrence: None)
  Receive Date: 20080122
  Receipt Date: 20080116
  Transmission Date: 20080703
  Serious: Yes (Other)
  Sender: FDA-Public Use
  Company Number: GB-ALLERGAN-0800561US

PATIENT
  Sex: Female
  Weight: 44.5 kg

DRUGS (1)
  1. PREDNISOLONE ACETATE [Suspect]
     Indication: DRUG USE FOR UNKNOWN INDICATION

REACTIONS (6)
  - DEPRESSION [None]
  - DISTURBANCE IN ATTENTION [None]
  - EYE IRRITATION [None]
  - FATIGUE [None]
  - MUSCULAR WEAKNESS [None]
  - VISION BLURRED [None]
